FAERS Safety Report 5807952-3 (Version None)
Quarter: 2008Q3

REPORT INFORMATION
  Report Type: 
  Country: None (occurrence: None)
  Receive Date: 20080711
  Receipt Date: 20080630
  Transmission Date: 20090109
  Serious: Yes (Other)
  Sender: FDA-Public Use
  Company Number: US-PFIZER INC-2008046233

PATIENT
  Sex: Male

DRUGS (3)
  1. NEURONTIN [Suspect]
  2. PSYLLIUM [Concomitant]
  3. HYDROCODONE [Concomitant]

REACTIONS (4)
  - ADVERSE DRUG REACTION [None]
  - GAIT DISTURBANCE [None]
  - OEDEMA PERIPHERAL [None]
  - SURGERY [None]
